FAERS Safety Report 7024440-X (Version None)
Quarter: 2010Q4

REPORT INFORMATION
  Report Type: 
  Country: None (occurrence: None)
  Receive Date: 20101001
  Receipt Date: 20100924
  Transmission Date: 20110411
  Serious: Yes (Other)
  Sender: FDA-Public Use
  Company Number: JP-JNJFOC-20100908493

PATIENT
  Age: 6 Decade
  Sex: Male

DRUGS (2)
  1. RISPERDAL [Suspect]
     Indication: ANXIETY
     Route: 048
  2. RISPERDAL [Suspect]
     Indication: SLEEP DISORDER
     Route: 048

REACTIONS (3)
  - BRAIN INJURY [None]
  - INCREASED APPETITE [None]
  - OFF LABEL USE [None]
